FAERS Safety Report 12618780 (Version 1)
Quarter: 2016Q3

REPORT INFORMATION
  Report Type: Spontaneous
  Country: JP (occurrence: JP)
  Receive Date: 20160803
  Receipt Date: 20160803
  Transmission Date: 20161109
  Serious: Yes (Other)
  Sender: FDA-Public Use
  Company Number: JP-PFIZER INC-2016365077

PATIENT
  Age: 80 Year
  Sex: Male

DRUGS (4)
  1. METHYCOBAL [Suspect]
     Active Substance: METHYLCOBALAMIN
     Dosage: UNK
  2. LYRICA [Suspect]
     Active Substance: PREGABALIN
     Indication: POST HERPETIC NEURALGIA
     Dosage: 600 MG, DAILY
     Route: 048
  3. TALION [Concomitant]
     Active Substance: BEPOTASTINE
     Dosage: UNK
  4. TRAMAL [Suspect]
     Active Substance: TRAMADOL
     Indication: POST HERPETIC NEURALGIA
     Dosage: 25 MG, DAILY
     Route: 048

REACTIONS (3)
  - Oliguria [Recovering/Resolving]
  - Oedema peripheral [Recovering/Resolving]
  - Scrotal oedema [Recovering/Resolving]

NARRATIVE: CASE EVENT DATE: 20160715
